FAERS Safety Report 9444235 (Version 1)
Quarter: 2013Q3

REPORT INFORMATION
  Report Type: Spontaneous
  Country: US (occurrence: None)
  Receive Date: 20130806
  Receipt Date: 20130806
  Transmission Date: 20140515
  Serious: Yes (Other)
  Sender: FDA-Public Use
  Company Number: None

PATIENT
  Age: 91 Year
  Sex: Female
  Weight: 56.7 kg

DRUGS (1)
  1. SULFAMETHOXAZOLE TM [Suspect]
     Indication: URINARY TRACT INFECTION
     Dosage: 1 TABLET 2 TIMES A DAY
     Dates: start: 20130719, end: 20130726

REACTIONS (6)
  - Hallucination, auditory [None]
  - Rash [None]
  - Nausea [None]
  - Vomiting [None]
  - Muscular weakness [None]
  - Decreased appetite [None]
